FAERS Safety Report 7089328-7 (Version None)
Quarter: 2010Q4

REPORT INFORMATION
  Report Type: 
  Country: None (occurrence: None)
  Receive Date: 20101029
  Receipt Date: 20101025
  Transmission Date: 20110411
  Serious: Yes (Hospitalization)
  Sender: FDA-Public Use
  Company Number: 2010SP056893

PATIENT
  Age: 65 Year
  Sex: Female

DRUGS (3)
  1. TEMODAL [Suspect]
     Indication: GLIOBLASTOMA
     Dosage: 120 MG;QD;PO
     Route: 048
     Dates: start: 20100519, end: 20100707
  2. KEPPRA [Concomitant]
  3. DEROXAT [Concomitant]

REACTIONS (8)
  - ABDOMINAL PAIN [None]
  - APATHY [None]
  - CREPITATIONS [None]
  - CYTOLYTIC HEPATITIS [None]
  - ESCHERICHIA INFECTION [None]
  - GENERAL PHYSICAL HEALTH DETERIORATION [None]
  - PROTEUS INFECTION [None]
  - VOMITING [None]
